FAERS Safety Report 25897867 (Version 1)
Quarter: 2025Q4

REPORT INFORMATION
  Report Type: Spontaneous
  Country: EU (occurrence: EU)
  Receive Date: 20251008
  Receipt Date: 20251008
  Transmission Date: 20260117
  Serious: Yes (Other)
  Sender: NOVARTIS
  Company Number: EU-002147023-NVSC2025NO146284

PATIENT
  Age: 69 Year
  Sex: Male
  Weight: 58 kg

DRUGS (9)
  1. ASCIMINIB [Suspect]
     Active Substance: ASCIMINIB
     Indication: Chronic myeloid leukaemia
     Dosage: 20 MG (X1)
     Route: 065
     Dates: start: 20241115
  2. ASCIMINIB [Suspect]
     Active Substance: ASCIMINIB
     Dosage: 20 MG (X2)
     Route: 065
     Dates: start: 20241223, end: 20250210
  3. ASCIMINIB [Suspect]
     Active Substance: ASCIMINIB
     Dosage: 40 MG (X2)
     Route: 065
     Dates: start: 20250312
  4. ASCIMINIB [Suspect]
     Active Substance: ASCIMINIB
     Dosage: 40 MG (X1)
     Route: 065
     Dates: start: 20250409
  5. ASCIMINIB [Suspect]
     Active Substance: ASCIMINIB
     Dosage: 20 MG (X2)
     Route: 065
     Dates: start: 20250210
  6. ASCIMINIB [Suspect]
     Active Substance: ASCIMINIB
     Dosage: 40 MG (X1)
     Route: 065
     Dates: start: 20250522
  7. ASCIMINIB [Suspect]
     Active Substance: ASCIMINIB
     Dosage: 40 MG (X1)
     Route: 065
     Dates: start: 20250605
  8. ASCIMINIB [Suspect]
     Active Substance: ASCIMINIB
     Dosage: 40 MG (X1)
     Route: 065
     Dates: start: 20250721
  9. ASCIMINIB [Suspect]
     Active Substance: ASCIMINIB
     Dosage: 40 MG (X1)
     Route: 065
     Dates: start: 20250929

REACTIONS (5)
  - Renal failure [Unknown]
  - Hypertension [Unknown]
  - Pleural effusion [Not Recovered/Not Resolved]
  - Dyspnoea [Recovered/Resolved]
  - Off label use [Unknown]

NARRATIVE: CASE EVENT DATE: 20241115
